FAERS Safety Report 6011046-4 (Version None)
Quarter: 2008Q4

REPORT INFORMATION
  Report Type: 
  Country: None (occurrence: None)
  Receive Date: 20081218
  Receipt Date: 20081208
  Transmission Date: 20090506
  Serious: Yes (Hospitalization)
  Sender: FDA-Public Use
  Company Number: SE-PFIZER INC-2008152408

PATIENT

DRUGS (10)
  1. ATORVASTATIN CALCIUM [Suspect]
     Indication: CORONARY ARTERY DISEASE
     Dates: end: 20081015
  2. SPIRONOLACTONE [Suspect]
     Indication: CORONARY ARTERY DISEASE
     Dosage: UNK
     Dates: end: 20081007
  3. RENITEC [Suspect]
     Indication: CORONARY ARTERY DISEASE
     Dosage: UNK
     Dates: end: 20081007
  4. OMEPRAZOLE [Suspect]
     Indication: GASTRITIS
     Dosage: UNK
     Dates: start: 20080701, end: 20081015
  5. SELOKEN ZOC [Concomitant]
     Dosage: 100 MG, 1X/DAY
  6. FUROSEMID ^NORDIC^ [Concomitant]
     Dosage: 40 MG, 1X/DAY
  7. ALLOPURINOL ^NORDIC^ [Concomitant]
     Dosage: 100 MG, 1X/DAY
  8. TROMBYL [Concomitant]
     Dosage: 75 MG, 1X/DAY
  9. IMDUR [Concomitant]
     Dosage: 30 MG, 1X/DAY
  10. TRIOBE [Concomitant]

REACTIONS (2)
  - BLOOD CREATININE INCREASED [None]
  - TRANSAMINASES INCREASED [None]
